FAERS Safety Report 6348030-7 (Version None)
Quarter: 2009Q3

REPORT INFORMATION
  Report Type: 
  Country: None (occurrence: None)
  Receive Date: 20090908
  Receipt Date: 20090827
  Transmission Date: 20100115
  Serious: Yes (Death, Hospitalization)
  Sender: FDA-Public Use
  Company Number: 2000528

PATIENT
  Age: 22 Year
  Sex: Female
  Weight: 42.3 kg

DRUGS (4)
  1. KEPPRA [Suspect]
     Indication: COMPLEX PARTIAL SEIZURES
     Dosage: 500 MG 2/D PO
     Route: 048
     Dates: start: 20020321, end: 20020515
  2. DILANTIN [Suspect]
     Indication: COMPLEX PARTIAL SEIZURES
     Dosage: 300 MG /D PO
     Route: 048
     Dates: start: 20010507, end: 20020523
  3. PHENAZOPYRIDINE HCL TAB [Concomitant]
  4. MACRODANTIN [Concomitant]

REACTIONS (15)
  - APLASTIC ANAEMIA [None]
  - BONE MARROW FAILURE [None]
  - BRONCHOPULMONARY ASPERGILLOSIS [None]
  - CLOSTRIDIUM DIFFICILE COLITIS [None]
  - CYSTITIS [None]
  - INCREASED TENDENCY TO BRUISE [None]
  - NEUTROPENIA [None]
  - NO THERAPEUTIC RESPONSE [None]
  - NORMOCHROMIC NORMOCYTIC ANAEMIA [None]
  - PETECHIAE [None]
  - PHARYNGITIS [None]
  - PLATELET COUNT DECREASED [None]
  - UPPER RESPIRATORY TRACT INFECTION [None]
  - VAGINAL HAEMORRHAGE [None]
  - WHITE BLOOD CELL COUNT DECREASED [None]
